FAERS Safety Report 7139268-X (Version None)
Quarter: 2010Q4

REPORT INFORMATION
  Report Type: 
  Country: None (occurrence: None)
  Receive Date: 20101206
  Receipt Date: 20101129
  Transmission Date: 20110411
  Serious: Yes (Hospitalization)
  Sender: FDA-Public Use
  Company Number: FR-ABBOTT-10P-056-0688543-00

PATIENT
  Age: 65 Year
  Sex: Male

DRUGS (7)
  1. DEPAKENE [Suspect]
     Indication: CONVULSION PROPHYLAXIS
     Route: 048
     Dates: end: 20101101
  2. ESOMEPRAZOLE [Suspect]
     Indication: HIATUS HERNIA
     Route: 048
     Dates: end: 20100801
  3. ESOMEPRAZOLE [Suspect]
     Route: 048
     Dates: end: 20101108
  4. ATENOLOL [Suspect]
     Indication: PRODUCT USED FOR UNKNOWN INDICATION
     Route: 048
  5. FLECAINIDE ACETATE [Suspect]
     Indication: PRODUCT USED FOR UNKNOWN INDICATION
     Route: 048
  6. LEXOMIL [Suspect]
     Indication: ANXIETY
     Route: 048
     Dates: end: 20101101
  7. LEXOMIL [Suspect]
     Indication: INSOMNIA

REACTIONS (2)
  - CHOLESTASIS [None]
  - MIXED LIVER INJURY [None]
